FAERS Safety Report 7716722-0 (Version None)
Quarter: 2011Q3

REPORT INFORMATION
  Report Type: 
  Country: None (occurrence: None)
  Receive Date: 20110829
  Receipt Date: 20110826
  Transmission Date: 20111222
  Serious: Yes (Hospitalization)
  Sender: FDA-Public Use
  Company Number: US-CEPHALON-2011004497

PATIENT
  Sex: Female
  Weight: 83 kg

DRUGS (4)
  1. REVLIMID [Concomitant]
     Route: 048
     Dates: start: 20100301
  2. TREANDA [Suspect]
     Indication: MULTIPLE MYELOMA
     Route: 042
     Dates: start: 20110726, end: 20110802
  3. VALCADE [Concomitant]
     Indication: MULTIPLE MYELOMA
     Route: 042
     Dates: start: 20100301
  4. PERCOCET [Concomitant]
     Dates: start: 20100301

REACTIONS (5)
  - PROTEIN TOTAL INCREASED [None]
  - VOMITING [None]
  - DEHYDRATION [None]
  - NAUSEA [None]
  - BLOOD CREATININE INCREASED [None]
